FAERS Safety Report 8092095-1 (Version None)
Quarter: 2012Q1

REPORT INFORMATION
  Report Type: 
  Country: None (occurrence: None)
  Receive Date: 20120131
  Receipt Date: 20120123
  Transmission Date: 20120608
  Serious: Yes (Hospitalization, Other)
  Sender: FDA-Public Use
  Company Number: GB-JNJFOC-20120104174

PATIENT
  Age: 33 Year
  Sex: Male

DRUGS (2)
  1. XEPLION [Suspect]
     Indication: PRODUCT USED FOR UNKNOWN INDICATION
     Route: 030
  2. XEPLION [Suspect]
     Route: 030

REACTIONS (6)
  - TESTICULAR PAIN [None]
  - BLOOD PROLACTIN INCREASED [None]
  - BLOOD URINE PRESENT [None]
  - GYNAECOMASTIA [None]
  - INSOMNIA [None]
  - BACK PAIN [None]
